FAERS Safety Report 22028838 (Version 1)
Quarter: 2023Q1

REPORT INFORMATION
  Report Type: Spontaneous
  Country: JP (occurrence: JP)
  Receive Date: 20230223
  Receipt Date: 20230223
  Transmission Date: 20230417
  Serious: Yes (Death, Other)
  Sender: FDA-Public Use
  Company Number: JP-BAXTER-2023BAX013433

PATIENT
  Age: 62 Year
  Sex: Female

DRUGS (2)
  1. CYCLOPHOSPHAMIDE [Suspect]
     Active Substance: CYCLOPHOSPHAMIDE
     Indication: Acute myeloid leukaemia recurrent
     Dosage: 50 MG/KG/DAY, FOR 2 DAYS
     Route: 065
  2. CYTARABINE [Concomitant]
     Active Substance: CYTARABINE
     Indication: Acute myeloid leukaemia recurrent
     Route: 065

REACTIONS (11)
  - Cardiomyopathy [Fatal]
  - Oxygen saturation decreased [Fatal]
  - Blood pressure systolic inspiratory decreased [Fatal]
  - Ventricular hypertrophy [Fatal]
  - Condition aggravated [Fatal]
  - Pericardial effusion [Fatal]
  - Ejection fraction decreased [Fatal]
  - Cardiac tamponade [Fatal]
  - Cardiogenic shock [Fatal]
  - Shock [Fatal]
  - Cystitis haemorrhagic [Unknown]
